FAERS Safety Report 4554230-9 (Version None)
Quarter: 2005Q1

REPORT INFORMATION
  Report Type: 
  Country: None (occurrence: None)
  Receive Date: 20050118
  Receipt Date: 20050106
  Transmission Date: 20050727
  Serious: Yes (Other)
  Sender: FDA-Public Use
  Company Number: PHNU2005DE00482

PATIENT
  Sex: Female

DRUGS (1)
  1. LUDIOMIL [Suspect]
     Dosage: 150 MG/DAY
     Route: 065

REACTIONS (1)
  - CHOREA [None]
